FAERS Safety Report 16133231 (Version 1)
Quarter: 2019Q1

REPORT INFORMATION
  Report Type: Spontaneous
  Country: CN (occurrence: CN)
  Receive Date: 20190329
  Receipt Date: 20190329
  Transmission Date: 20190418
  Serious: Yes (Other)
  Sender: FDA-Public Use
  Company Number: CN-BAXTER-2019BAX005991

PATIENT
  Age: 53 Year
  Sex: Female
  Weight: 57 kg

DRUGS (12)
  1. 0.9% SODIUM CHLORIDE INJECTION [Suspect]
     Active Substance: SODIUM CHLORIDE
     Dosage: 4TH CHEMOTHERAPY; DILUTED WITH ENDOXAN FOR INJECTION
     Route: 042
     Dates: start: 20190130, end: 20190130
  2. 0.9% SODIUM CHLORIDE INJECTION [Suspect]
     Active Substance: SODIUM CHLORIDE
     Dosage: 4TH CHEMOTHERAPY; DILUTED WITH PHARMORUBICIN FOR INJECTION
     Route: 041
     Dates: start: 20190130, end: 20190130
  3. PHARMORUBICIN [Suspect]
     Active Substance: EPIRUBICIN
     Indication: BREAST CANCER FEMALE
     Dosage: 1 AND 3 RD CHEMOTHERAPY, PHARMORUBICIN DILUTED WITH NORMAL SALINE
     Route: 065
  4. PHARMORUBICIN [Suspect]
     Active Substance: EPIRUBICIN
     Dosage: DOSE REINTRODUCED; DILUTED WITH 100 ML OF NS
     Route: 041
  5. ENDOXAN [Suspect]
     Active Substance: CYCLOPHOSPHAMIDE
     Indication: BREAST CANCER FEMALE
     Dosage: 1 AND 3RD CHEMOTHERAPY, ENDOXAN DILUTED WITH NORMAL SALINE
     Route: 065
  6. ENDOXAN [Suspect]
     Active Substance: CYCLOPHOSPHAMIDE
     Dosage: (ENDOXAN CTX); 4TH CHEMOTHERAPY; DILUTED WITH 40 ML OF NS
     Route: 042
     Dates: start: 20190130, end: 20190130
  7. ENDOXAN [Suspect]
     Active Substance: CYCLOPHOSPHAMIDE
     Dosage: DOSE REINTRODUCED ENDOXAN DILUTED WITH NORMAL SALINE
     Route: 042
  8. 0.9% SODIUM CHLORIDE INJECTION [Suspect]
     Active Substance: SODIUM CHLORIDE
     Indication: MEDICATION DILUTION
     Dosage: 1 AND 3 RD CHEMOTHERAPY, ENDOXAN DILUTED WITH NORMAL SALINE
     Route: 065
  9. 0.9% SODIUM CHLORIDE INJECTION [Suspect]
     Active Substance: SODIUM CHLORIDE
     Dosage: DOSE REINTRODUCED; DILUTED WITH PHARMORUBICIN FOR INJECTION
     Route: 041
  10. PHARMORUBICIN [Suspect]
     Active Substance: EPIRUBICIN
     Dosage: 4TH CHEMOTHERAPY; DILUTED WITH 100 ML OF NS
     Route: 041
     Dates: start: 20190130, end: 20190130
  11. 0.9% SODIUM CHLORIDE INJECTION [Suspect]
     Active Substance: SODIUM CHLORIDE
     Dosage: 1 AND 3RD CHEMOTHERAPY PHARMORUBICIN DILUTED WITH NORMAL SALINE
     Route: 065
  12. 0.9% SODIUM CHLORIDE INJECTION [Suspect]
     Active Substance: SODIUM CHLORIDE
     Dosage: DOSE RE-INTRODUCED; DILUTED WITH ENDOXAN FOR INJECTION
     Route: 042

REACTIONS (2)
  - Agranulocytosis [Recovered/Resolved]
  - Leukopenia [Recovered/Resolved]

NARRATIVE: CASE EVENT DATE: 20190210
